FAERS Safety Report 25106628 (Version 1)
Quarter: 2025Q1

REPORT INFORMATION
  Report Type: Spontaneous
  Country: US (occurrence: None)
  Receive Date: 20250321
  Receipt Date: 20250321
  Transmission Date: 20250409
  Serious: No
  Sender: FDA-CTU
  Company Number: None

PATIENT
  Age: 56 Year
  Sex: Female
  Weight: 42.2 kg

DRUGS (5)
  1. TRAMADOL [Suspect]
     Active Substance: TRAMADOL
     Indication: Ear pain
     Route: 048
     Dates: start: 20250210, end: 20250211
  2. IBUPROFEN [Concomitant]
     Active Substance: IBUPROFEN
     Dates: start: 20250207, end: 20250211
  3. OLANZAPINE [Concomitant]
     Active Substance: OLANZAPINE
  4. VALPROIC ACID [Concomitant]
     Active Substance: VALPROIC ACID
  5. SUVOREXANT [Concomitant]
     Active Substance: SUVOREXANT

REACTIONS (6)
  - Rash [None]
  - Hyponatraemia [None]
  - Dehydration [None]
  - Agitation [None]
  - Erythema [None]
  - Constipation [None]

NARRATIVE: CASE EVENT DATE: 20250211
